FAERS Safety Report 4395506-8 (Version None)
Quarter: 2004Q3

REPORT INFORMATION
  Report Type: 
  Country: None (occurrence: None)
  Receive Date: 20040708
  Receipt Date: 20040629
  Transmission Date: 20050211
  Serious: Yes (Hospitalization)
  Sender: FDA-Public Use
  Company Number: 200418768BWH

PATIENT
  Age: 57 Year
  Sex: Male
  Weight: 99.1 kg

DRUGS (5)
  1. DTIC-DOME [Suspect]
     Dosage: 1000 MG/M2, TOTAL DAILY, INTRAVENOUS
     Route: 042
     Dates: start: 20040503
  2. ATENOLOL [Concomitant]
  3. KYTRIL [Concomitant]
  4. DEXAMETHASONE [Concomitant]
  5. ZOFRAN [Concomitant]

REACTIONS (3)
  - ACTIVATED PARTIAL THROMBOPLASTIN TIME PROLONGED [None]
  - FIBRIN D DIMER INCREASED [None]
  - PULMONARY EMBOLISM [None]
